FAERS Safety Report 16747535 (Version 4)
Quarter: 2020Q1

REPORT INFORMATION
  Report Type: Report from Study
  Country: CA (occurrence: CA)
  Receive Date: 20190827
  Receipt Date: 20200116
  Transmission Date: 20200409
  Serious: Yes (Other)
  Sender: FDA-Public Use
  Company Number: CA-JNJFOC-20190634427

PATIENT
  Age: 66 Year
  Sex: Female
  Weight: 61.65 kg

DRUGS (6)
  1. PREDNISONE. [Concomitant]
     Active Substance: PREDNISONE
     Indication: COLITIS ULCERATIVE
  2. REMICADE [Suspect]
     Active Substance: INFLIXIMAB
     Route: 042
  3. TYLENOL [Concomitant]
     Active Substance: ACETAMINOPHEN
     Indication: ARTHRALGIA
  4. BACLOFEN. [Concomitant]
     Active Substance: BACLOFEN
     Indication: MUSCLE TIGHTNESS
  5. REMICADE [Suspect]
     Active Substance: INFLIXIMAB
     Indication: COLITIS ULCERATIVE
     Route: 042
     Dates: start: 20190123, end: 20191216
  6. LEVOTHYROXINE. [Concomitant]
     Active Substance: LEVOTHYROXINE

REACTIONS (8)
  - Gastrointestinal infection [Unknown]
  - Headache [Recovered/Resolved]
  - Drug level below therapeutic [Unknown]
  - Muscle tightness [Recovered/Resolved]
  - Colitis ulcerative [Not Recovered/Not Resolved]
  - Herpes zoster [Recovering/Resolving]
  - General physical health deterioration [Unknown]
  - Alopecia [Unknown]

NARRATIVE: CASE EVENT DATE: 2019
